FAERS Safety Report 13891107 (Version 1)
Quarter: 2017Q3

REPORT INFORMATION
  Report Type: Spontaneous
  Country: FR (occurrence: FR)
  Receive Date: 20170822
  Receipt Date: 20170822
  Transmission Date: 20171127
  Serious: Yes (Hospitalization)
  Sender: FDA-Public Use
  Company Number: FR-PFIZER INC-2017357782

PATIENT
  Age: 83 Year
  Sex: Female

DRUGS (12)
  1. KREDEX [Concomitant]
     Active Substance: CARVEDILOL
     Dosage: 25 MG, 2X/DAY (2 DOSAGE FORMS IN THE MORNING AND 2 IN THE EVENING)
  2. PREVISCAN /00789001/ [Concomitant]
     Active Substance: FLUINDIONE
  3. FUROSEMIDE. [Concomitant]
     Active Substance: FUROSEMIDE
     Dosage: 80 MG, DAILY (2 DF DAILY)
  4. OGAST [Concomitant]
     Active Substance: LANSOPRAZOLE
     Dosage: 1 DF, DAILY
  5. DIFFU K [Concomitant]
     Active Substance: POTASSIUM CHLORIDE
     Dosage: 2 DF, DAILY
  6. ALPRAZOLAM. [Concomitant]
     Active Substance: ALPRAZOLAM
     Dosage: 2.5 DF, DAILY
  7. AUGMENTIN [Suspect]
     Active Substance: AMOXICILLIN\CLAVULANATE POTASSIUM
     Indication: ERYSIPELAS
     Dosage: 1 G, 3X/DAY
     Route: 042
     Dates: start: 20170702, end: 20170710
  8. HAVLANE [Concomitant]
     Active Substance: LOPRAZOLAM
     Dosage: 1 DF, 1X/DAY (IN THE EVENING)
  9. DIAMICRON [Concomitant]
     Active Substance: GLICLAZIDE
     Dosage: 1 DF, 1X/DAY IN THE MORNING
  10. EFFEXOR [Concomitant]
     Active Substance: VENLAFAXINE HYDROCHLORIDE
     Dosage: 1 DF, 1X/DAY
  11. XELEVIA [Concomitant]
     Active Substance: SITAGLIPTIN PHOSPHATE
     Dosage: 1 DF, DAILY
  12. DALACINE [Suspect]
     Active Substance: CLINDAMYCIN HYDROCHLORIDE
     Indication: ERYSIPELAS
     Dosage: 600 MG, DAILY
     Route: 048
     Dates: start: 20170702, end: 20170710

REACTIONS (6)
  - Catheter site infection [Unknown]
  - Eye pain [Unknown]
  - Pseudomonas infection [Unknown]
  - Oral herpes [Unknown]
  - Shock [Unknown]
  - Dermatitis exfoliative [Recovered/Resolved]

NARRATIVE: CASE EVENT DATE: 20170703
